FAERS Safety Report 8311968-5 (Version None)
Quarter: 2012Q2

REPORT INFORMATION
  Report Type: 
  Country: None (occurrence: None)
  Receive Date: 20120425
  Receipt Date: 20120418
  Transmission Date: 20120825
  Serious: No
  Sender: FDA-Public Use
  Company Number: US-BAYER-2012-038063

PATIENT
  Age: 28 Year
  Sex: Female
  Weight: 56.689 kg

DRUGS (2)
  1. ALEVE (CAPLET) [Suspect]
     Indication: HEADACHE
     Dosage: UNK, PRN
     Route: 048
  2. CONTRACEPTIVES NOS [Concomitant]

REACTIONS (4)
  - SKIN DISCOLOURATION [None]
  - LIP SWELLING [None]
  - BLISTER [None]
  - RASH [None]
